FAERS Safety Report 18020206 (Version 1)
Quarter: 2020Q3

REPORT INFORMATION
  Report Type: Spontaneous
  Country: GB (occurrence: GB)
  Receive Date: 20200714
  Receipt Date: 20200714
  Transmission Date: 20201103
  Serious: Yes (Other)
  Sender: FDA-Public Use
  Company Number: GB-GLAXOSMITHKLINE-GB2020126993

PATIENT
  Sex: Female

DRUGS (1)
  1. BECONASE AQ [Suspect]
     Active Substance: BECLOMETHASONE DIPROPIONATE MONOHYDRATE
     Indication: CATARRH
     Dosage: UNK
     Route: 045

REACTIONS (7)
  - Ocular discomfort [Unknown]
  - Eye haemorrhage [Unknown]
  - Eye irritation [Unknown]
  - Eye pruritus [Unknown]
  - Lacrimation increased [Unknown]
  - Eye pain [Unknown]
  - Periorbital swelling [Unknown]

NARRATIVE: CASE EVENT DATE: 202001
